FAERS Safety Report 20210724 (Version 7)
Quarter: 2023Q1

REPORT INFORMATION
  Report Type: Report from Study
  Country: IN (occurrence: IN)
  Receive Date: 20211221
  Receipt Date: 20230111
  Transmission Date: 20230417
  Serious: Yes (Hospitalization, Other)
  Sender: FDA-Public Use
  Company Number: IN-TAKEDA-2021TUS079831

PATIENT
  Sex: Female

DRUGS (1)
  1. VEDOLIZUMAB [Suspect]
     Active Substance: VEDOLIZUMAB
     Indication: Crohn^s disease
     Dosage: 300 MILLIGRAM
     Route: 042

REACTIONS (6)
  - Crohn^s disease [Unknown]
  - Rectal discharge [Unknown]
  - Platelet count increased [Unknown]
  - White blood cell count increased [Unknown]
  - Therapy non-responder [Unknown]
  - Inappropriate schedule of product administration [Unknown]
